FAERS Safety Report 7384140-3 (Version None)
Quarter: 2011Q1

REPORT INFORMATION
  Report Type: 
  Country: None (occurrence: None)
  Receive Date: 20110330
  Receipt Date: 20110322
  Transmission Date: 20110831
  Serious: Yes (Other)
  Sender: FDA-Public Use
  Company Number: A0920399A

PATIENT
  Sex: Male

DRUGS (1)
  1. COREG [Suspect]

REACTIONS (1)
  - GASTRIC NEOPLASM [None]
